FAERS Safety Report 8138329-6 (Version None)
Quarter: 2012Q1

REPORT INFORMATION
  Report Type: 
  Country: None (occurrence: None)
  Receive Date: 20120215
  Receipt Date: 20120213
  Transmission Date: 20120608
  Serious: Yes (Other)
  Sender: FDA-Public Use
  Company Number: US-PFIZER INC-2012039006

PATIENT
  Sex: Male
  Weight: 102.4 kg

DRUGS (5)
  1. CHANTIX [Suspect]
     Indication: SMOKING CESSATION THERAPY
     Dosage: 0.5 MG, 1X/DAY
     Route: 048
     Dates: start: 20120101
  2. DICLOFENAC [Concomitant]
     Indication: ARTHRITIS
     Dosage: UNK
  3. EFFEXOR XR [Suspect]
     Indication: DEPRESSION
     Dosage: 1 MG, 2X/DAY
     Route: 048
  4. EFFEXOR XR [Suspect]
     Dosage: UNK
     Route: 048
  5. CHANTIX [Suspect]
     Dosage: UNK
     Route: 048

REACTIONS (2)
  - SUICIDAL IDEATION [None]
  - PAIN [None]
